FAERS Safety Report 5894925-8 (Version None)
Quarter: 2008Q3

REPORT INFORMATION
  Report Type: 
  Country: None (occurrence: None)
  Receive Date: 20080924
  Receipt Date: 20080917
  Transmission Date: 20090109
  Serious: Yes (Other)
  Sender: FDA-Public Use
  Company Number: PHHY2008AT21542

PATIENT
  Sex: Female

DRUGS (1)
  1. TEGRETOL [Suspect]
     Indication: TRIGEMINAL NEURALGIA

REACTIONS (1)
  - MYCOSIS FUNGOIDES [None]
